FAERS Safety Report 9196388 (Version 1)
Quarter: 2013Q1

REPORT INFORMATION
  Report Type: Spontaneous
  Country: FR (occurrence: FR)
  Receive Date: 20130328
  Receipt Date: 20130328
  Transmission Date: 20140127
  Serious: Yes (Other)
  Sender: FDA-Public Use
  Company Number: FR-PFIZER INC-2013092513

PATIENT
  Age: 13 Year
  Sex: Male
  Weight: 37 kg

DRUGS (2)
  1. REVATIO [Suspect]
     Indication: PULMONARY ARTERIAL HYPERTENSION
     Dosage: UNK
     Route: 048
     Dates: start: 20120319
  2. COUMADINE [Suspect]
     Indication: PULMONARY MICROEMBOLI
     Dosage: UNK
     Route: 048
     Dates: start: 20120321

REACTIONS (7)
  - Erythema [Not Recovered/Not Resolved]
  - Vomiting [Not Recovered/Not Resolved]
  - Petechiae [Not Recovered/Not Resolved]
  - Diarrhoea [Not Recovered/Not Resolved]
  - International normalised ratio decreased [Not Recovered/Not Resolved]
  - Muscular weakness [Recovered/Resolved]
  - Flushing [Recovered/Resolved]
